FAERS Safety Report 5333129-4 (Version None)
Quarter: 2007Q2

REPORT INFORMATION
  Report Type: 
  Country: None (occurrence: None)
  Receive Date: 20070521
  Receipt Date: 20070521
  Transmission Date: 20071010
  Serious: Yes (Hospitalization)
  Sender: FDA-Public Use
  Company Number: None

PATIENT
  Age: 69 Year
  Sex: Male
  Weight: 78.5 kg

DRUGS (1)
  1. RANEXA [Suspect]
     Indication: CORONARY ARTERY DISEASE
     Dosage: 500 MG BID PO
     Route: 048
     Dates: start: 20070401, end: 20070420

REACTIONS (5)
  - CONFUSIONAL STATE [None]
  - DELIRIUM [None]
  - DIABETES MELLITUS [None]
  - HAEMODIALYSIS [None]
  - RENAL FAILURE CHRONIC [None]
